FAERS Safety Report 14319806 (Version 8)
Quarter: 2019Q1

REPORT INFORMATION
  Report Type: Report from Study
  Country: CA (occurrence: CA)
  Receive Date: 20171222
  Receipt Date: 20190123
  Transmission Date: 20190417
  Serious: Yes (Hospitalization, Other)
  Sender: FDA-Public Use
  Company Number: CA-BRISTOL-MYERS SQUIBB COMPANY-BMS-2017-105152

PATIENT
  Age: 82 Year
  Sex: Male

DRUGS (2)
  1. ABATACEPT [Suspect]
     Active Substance: ABATACEPT
     Indication: PRODUCT USED FOR UNKNOWN INDICATION
     Dosage: 750 MG, Q4WK
     Route: 042
     Dates: start: 20120402
  2. ABATACEPT [Suspect]
     Active Substance: ABATACEPT
     Indication: RHEUMATOID ARTHRITIS
     Dosage: 750 MG, UNK
     Route: 042
     Dates: start: 20070608

REACTIONS (19)
  - Pain in extremity [Not Recovered/Not Resolved]
  - Blood pressure increased [Unknown]
  - Bowel movement irregularity [Unknown]
  - Limb injury [Recovering/Resolving]
  - Cough [Unknown]
  - Scab [Unknown]
  - Acrochordon [Unknown]
  - Pruritus [Unknown]
  - Nasopharyngitis [Recovering/Resolving]
  - Adverse event [Recovered/Resolved]
  - Blister [Unknown]
  - Infection [Recovered/Resolved]
  - Fatigue [Unknown]
  - Angina pectoris [Not Recovered/Not Resolved]
  - Skin haemorrhage [Unknown]
  - Vein rupture [Not Recovered/Not Resolved]
  - Tooth disorder [Recovered/Resolved]
  - Skin lesion [Recovering/Resolving]
  - Productive cough [Unknown]

NARRATIVE: CASE EVENT DATE: 20171113
